FAERS Safety Report 5698853-2 (Version None)
Quarter: 2008Q2

REPORT INFORMATION
  Report Type: 
  Country: None (occurrence: None)
  Receive Date: 20080408
  Receipt Date: 20060524
  Transmission Date: 20081010
  Serious: Yes (Life-Threatening)
  Sender: FDA-Public Use
  Company Number: US-BAYER-US-2006-011961

PATIENT
  Age: 56 Year
  Sex: Male
  Weight: 131 kg

DRUGS (10)
  1. REFLUDAN [Suspect]
     Indication: ANTICOAGULANT THERAPY
  2. METOPROLOL TARTRATE [Concomitant]
  3. SIMVASTATIN [Concomitant]
  4. ASPIRIN [Concomitant]
  5. GLIPIZIDE [Concomitant]
  6. LISINOPRIL [Concomitant]
  7. ISOSORBIDE DINITRATE [Concomitant]
  8. FUROSEMIDE [Concomitant]
  9. POTASSIUM CHLORIDE [Concomitant]
  10. VANCOMYCIN [Concomitant]

REACTIONS (1)
  - HAEMORRHAGE [None]
